FAERS Safety Report 24147320 (Version 4)
Quarter: 2025Q1

REPORT INFORMATION
  Report Type: Report from Study
  Country: US (occurrence: US)
  Receive Date: 20240729
  Receipt Date: 20250321
  Transmission Date: 20250409
  Serious: Yes (Other)
  Sender: TAKEDA
  Company Number: US-TAKEDA-2024TUS074448

PATIENT
  Sex: Male
  Weight: 78 kg

DRUGS (16)
  1. TEDUGLUTIDE [Suspect]
     Active Substance: TEDUGLUTIDE
     Indication: Short-bowel syndrome
     Dosage: 4.2 MILLIGRAM, QD
  2. TEDUGLUTIDE [Suspect]
     Active Substance: TEDUGLUTIDE
     Dosage: 4.2 MILLIGRAM, QD
  3. TEDUGLUTIDE [Suspect]
     Active Substance: TEDUGLUTIDE
     Dosage: 4.2 MILLIGRAM, QD
  4. TEDUGLUTIDE [Suspect]
     Active Substance: TEDUGLUTIDE
     Dosage: 3.9 MILLIGRAM, QD
  5. IMODIUM A-D [Concomitant]
     Active Substance: LOPERAMIDE HYDROCHLORIDE
  6. VIMPAT [Concomitant]
     Active Substance: LACOSAMIDE
  7. CLONAZEPAM [Concomitant]
     Active Substance: CLONAZEPAM
  8. PULMICORT TURBUHALER [Concomitant]
     Active Substance: BUDESONIDE
  9. ALBUTEROL SULFATE [Concomitant]
     Active Substance: ALBUTEROL SULFATE
  10. PROPRANOLOL HYDROCHLORIDE [Concomitant]
     Active Substance: PROPRANOLOL HYDROCHLORIDE
  11. RUFINAMIDE [Concomitant]
     Active Substance: RUFINAMIDE
  12. MIDODRINE HYDROCHLORIDE [Concomitant]
     Active Substance: MIDODRINE HYDROCHLORIDE
  13. EPIDIOLEX [Concomitant]
     Active Substance: CANNABIDIOL
  14. KEPPRA [Concomitant]
     Active Substance: LEVETIRACETAM
  15. ONFI [Concomitant]
     Active Substance: CLOBAZAM
  16. XCOPRI [Concomitant]
     Active Substance: CENOBAMATE

REACTIONS (8)
  - Seizure [Unknown]
  - Blood phosphorus increased [Unknown]
  - Diarrhoea [Unknown]
  - Urine output fluctuation [Recovering/Resolving]
  - Dehydration [Unknown]
  - Feeding tube user [Unknown]
  - Peripheral swelling [Unknown]
  - Abdominal distension [Unknown]
